FAERS Safety Report 19120240 (Version 1)
Quarter: 2021Q2

REPORT INFORMATION
  Report Type: Spontaneous
  Country: US (occurrence: US)
  Receive Date: 20210409
  Receipt Date: 20210409
  Transmission Date: 20210717
  Serious: No
  Sender: FDA-Public Use
  Company Number: None

PATIENT
  Age: 19 Year
  Sex: Female
  Weight: 73.35 kg

DRUGS (2)
  1. GUANFACINE. [Suspect]
     Active Substance: GUANFACINE
     Indication: ATTENTION DEFICIT HYPERACTIVITY DISORDER
     Route: 048
     Dates: start: 20210216, end: 20210309
  2. SEROQUEL [Suspect]
     Active Substance: QUETIAPINE FUMARATE

REACTIONS (4)
  - Hypotension [None]
  - Product contamination chemical [None]
  - Dizziness [None]
  - Recalled product administered [None]

NARRATIVE: CASE EVENT DATE: 20210409
